FAERS Safety Report 20863931 (Version 3)
Quarter: 2023Q1

REPORT INFORMATION
  Report Type: Spontaneous
  Country: ES (occurrence: ES)
  Receive Date: 20220523
  Receipt Date: 20230109
  Transmission Date: 20230417
  Serious: Yes (Hospitalization, Other)
  Sender: FDA-Public Use
  Company Number: ES-SA-SAC20220405000559

PATIENT
  Age: 61 Year
  Sex: Female
  Weight: 70 kg

DRUGS (5)
  1. METFORMIN [Suspect]
     Active Substance: METFORMIN HYDROCHLORIDE
     Indication: Type 2 diabetes mellitus
     Route: 048
  2. INSULIN GLARGINE [Suspect]
     Active Substance: INSULIN GLARGINE
     Indication: Type 2 diabetes mellitus
     Dosage: 16 U, QD
     Route: 058
     Dates: start: 202102
  3. INSULIN GLARGINE [Suspect]
     Active Substance: INSULIN GLARGINE
     Dosage: 20 U, QD
     Route: 058
  4. INSULIN GLARGINE [Suspect]
     Active Substance: INSULIN GLARGINE
     Dosage: 15 U, QD
     Route: 058
  5. CORTICOSTEROID NOS [Concomitant]
     Active Substance: CORTICOSTEROID NOS
     Indication: Product used for unknown indication
     Route: 065

REACTIONS (22)
  - Cataract [Recovering/Resolving]
  - Diabetes mellitus inadequate control [Unknown]
  - Cerebrospinal fluid leakage [Unknown]
  - Blood glucose abnormal [Unknown]
  - Somnolence [Recovering/Resolving]
  - Thirst [Recovering/Resolving]
  - Lactose intolerance [Unknown]
  - Cerebral disorder [Unknown]
  - Restlessness [Recovering/Resolving]
  - Weight decreased [Not Recovered/Not Resolved]
  - Abdominal distension [Unknown]
  - Nervousness [Recovering/Resolving]
  - Blood glucose increased [Recovering/Resolving]
  - Diplopia [Unknown]
  - Infection [Recovering/Resolving]
  - Fatigue [Recovering/Resolving]
  - Weight increased [Not Recovered/Not Resolved]
  - Eating disorder [Unknown]
  - Affective disorder [Unknown]
  - Depression [Unknown]
  - Diarrhoea [Recovering/Resolving]
  - Intentional product misuse [Unknown]
